FAERS Safety Report 4300130-9 (Version None)
Quarter: 2004Q1

REPORT INFORMATION
  Report Type: 
  Country: None (occurrence: None)
  Receive Date: 20040218
  Receipt Date: 20040204
  Transmission Date: 20041129
  Serious: Yes (Hospitalization)
  Sender: FDA-Public Use
  Company Number: UK065617

PATIENT
  Age: 7 Year
  Sex: Male

DRUGS (5)
  1. NEUPOGEN [Suspect]
     Indication: CHEMOTHERAPY
     Dosage: 185 MG, 1 IN 1 DAYS, SC
     Route: 058
  2. CARBOPLATIN [Suspect]
     Dosage: 587.9 MG, 1 IN 1 DAYS, IV
     Route: 042
     Dates: start: 20030701
  3. GABAPENTIN [Concomitant]
  4. TRIMETHOPRIM-SULFAMETHOXAZOLE [Concomitant]
  5. IRINOTECAN HYDROCHLORIDE [Suspect]
     Dosage: 13.1 MG, 1 IN 1 DAYS, IV
     Route: 042
     Dates: start: 20030701

REACTIONS (5)
  - OTITIS MEDIA [None]
  - OTORRHOEA [None]
  - PANCYTOPENIA [None]
  - PYREXIA [None]
  - TREMOR [None]
